FAERS Safety Report 7006318-0 (Version None)
Quarter: 2010Q3

REPORT INFORMATION
  Report Type: 
  Country: None (occurrence: None)
  Receive Date: 20100921
  Receipt Date: 20100909
  Transmission Date: 20110219
  Serious: Yes (Life-Threatening)
  Sender: FDA-Public Use
  Company Number: FR-WYE-H17544910

PATIENT
  Sex: Male

DRUGS (7)
  1. INIPOMP [Suspect]
     Dosage: UNKNOWN DOSE
     Route: 042
     Dates: start: 20100710
  2. PIPERACILLIN AND TAZOBACTAM [Suspect]
     Indication: PSEUDOMONAL BACTERAEMIA
     Route: 042
     Dates: start: 20100728, end: 20100809
  3. CORDARONE [Suspect]
     Dosage: UNKNOWN
     Route: 048
     Dates: start: 20100701
  4. AMIKACIN [Suspect]
     Dosage: UNKNOWN
     Route: 042
     Dates: start: 20100710
  5. FUROSEMIDE [Suspect]
     Dosage: UNKNOWN
     Route: 042
     Dates: start: 20100701
  6. VFEND [Suspect]
     Route: 042
     Dates: start: 20100729, end: 20100809
  7. VANCOMYCIN [Suspect]
     Indication: PSEUDOMONAL BACTERAEMIA
     Route: 042
     Dates: start: 20100728, end: 20100808

REACTIONS (1)
  - AGRANULOCYTOSIS [None]
